FAERS Safety Report 24175332 (Version 3)
Quarter: 2025Q1

REPORT INFORMATION
  Report Type: Report from Study
  Country: US (occurrence: US)
  Receive Date: 20240805
  Receipt Date: 20250203
  Transmission Date: 20250408
  Serious: Yes (Life-Threatening, Other)
  Sender: NOVARTIS
  Company Number: US-002147023-NVSC2024US027755

PATIENT
  Sex: Female

DRUGS (1)
  1. ENTRESTO [Suspect]
     Active Substance: SACUBITRIL\VALSARTAN
     Indication: Cardiac disorder
     Dosage: 1 DOSAGE FORM (24/26 MG), BID
     Route: 048
     Dates: start: 202302

REACTIONS (5)
  - Lung neoplasm malignant [Recovering/Resolving]
  - Dyspnoea [Recovered/Resolved]
  - Dyspnoea [Unknown]
  - Panic attack [Unknown]
  - Hypoacusis [Unknown]
